FAERS Safety Report 12094954 (Version 1)
Quarter: 2016Q1

REPORT INFORMATION
  Report Type: Spontaneous
  Country: ES (occurrence: ES)
  Receive Date: 20160219
  Receipt Date: 20160219
  Transmission Date: 20160526
  Serious: No
  Sender: FDA-Public Use
  Company Number: ES-PERNIX THERAPEUTICS-2015PT000165

PATIENT

DRUGS (2)
  1. CEDAX [Suspect]
     Active Substance: CEFTIBUTEN DIHYDRATE
     Indication: URINARY TRACT INFECTION
     Dosage: 400 MG, DAILY
     Route: 048
     Dates: start: 20150218, end: 20150224
  2. AVIDART [Concomitant]
     Indication: BENIGN PROSTATIC HYPERPLASIA
     Dosage: 0.5 MG, UNK

REACTIONS (2)
  - Pain in extremity [Recovering/Resolving]
  - Inflammation [Recovering/Resolving]

NARRATIVE: CASE EVENT DATE: 20150223
